FAERS Safety Report 7656189-4 (Version None)
Quarter: 2011Q3

REPORT INFORMATION
  Report Type: 
  Country: None (occurrence: None)
  Receive Date: 20110801
  Receipt Date: 20110722
  Transmission Date: 20111222
  Serious: Yes (Other)
  Sender: FDA-Public Use
  Company Number: 2011SP032898

PATIENT
  Age: 35 Year
  Sex: Female

DRUGS (3)
  1. ORGARAN [Suspect]
     Indication: PROPHYLAXIS
     Dosage: IV
     Route: 042
  2. ASPIRIN [Concomitant]
  3. PREDNISOLONE [Concomitant]

REACTIONS (11)
  - LOSS OF CONSCIOUSNESS [None]
  - HEPATIC INFARCTION [None]
  - INTESTINAL INFARCTION [None]
  - HEPATIC FUNCTION ABNORMAL [None]
  - INDUCED LABOUR [None]
  - ANTIPHOSPHOLIPID SYNDROME [None]
  - MATERNAL EXPOSURE DURING PREGNANCY [None]
  - CEREBRAL INFARCTION [None]
  - DIZZINESS [None]
  - HELLP SYNDROME [None]
  - TONIC CONVULSION [None]
